FAERS Safety Report 5965472-X (Version None)
Quarter: 2008Q4

REPORT INFORMATION
  Report Type: 
  Country: None (occurrence: None)
  Receive Date: 20081125
  Receipt Date: 20080212
  Transmission Date: 20090506
  Serious: No
  Sender: FDA-Public Use
  Company Number: US-BAYER-200810643BCC

PATIENT
  Age: 84 Year
  Sex: Female
  Weight: 59 kg

DRUGS (6)
  1. CAMPHO-PHENIQUE [Suspect]
     Indication: ORAL HERPES
     Dates: start: 20080206, end: 20080211
  2. ALEVE [Suspect]
     Indication: ARTHRITIS
     Dates: start: 20080101
  3. CARDIZEM [Concomitant]
  4. NITROGLYCERIN [Concomitant]
  5. ASPIRIN [Concomitant]
  6. MAVIK [Concomitant]

REACTIONS (1)
  - ORAL HERPES [None]
